FAERS Safety Report 7992167-3 (Version None)
Quarter: 2011Q4

REPORT INFORMATION
  Report Type: 
  Country: None (occurrence: None)
  Receive Date: 20111219
  Receipt Date: 20110915
  Transmission Date: 20120403
  Serious: No
  Sender: FDA-Public Use
  Company Number: US-ASTRAZENECA-2011SE55453

PATIENT
  Age: 37 Year
  Sex: Female
  Weight: 103 kg

DRUGS (2)
  1. GLUCOPHAGE [Concomitant]
     Indication: DIABETES MELLITUS
  2. CRESTOR [Suspect]
     Indication: BLOOD CHOLESTEROL ABNORMAL
     Dosage: DAILY
     Route: 048

REACTIONS (1)
  - WEIGHT DECREASED [None]
